FAERS Safety Report 12454783 (Version 1)
Quarter: 2016Q2

REPORT INFORMATION
  Report Type: Spontaneous
  Country: None (occurrence: None)
  Receive Date: 20160609
  Receipt Date: 20160609
  Transmission Date: 20160815
  Serious: Yes (Other)
  Sender: FDA-Public Use
  Company Number: None

PATIENT

DRUGS (1)
  1. LISINOPRIL, 20 MG [Suspect]
     Active Substance: LISINOPRIL
     Indication: HYPERTENSION
     Dosage: 90 TABLET(S) IN THE MORNING, TAKEN BY MOUTH
     Route: 048
     Dates: start: 20160101, end: 20160330

REACTIONS (6)
  - Migraine [None]
  - Vertigo [None]
  - Drug dispensing error [None]
  - Chest pain [None]
  - Wrong drug administered [None]
  - Angina pectoris [None]

NARRATIVE: CASE EVENT DATE: 20160401
